FAERS Safety Report 7527764-2 (Version None)
Quarter: 2011Q2

REPORT INFORMATION
  Report Type: 
  Country: None (occurrence: None)
  Receive Date: 20110607
  Receipt Date: 20110404
  Transmission Date: 20111010
  Serious: Yes (Disabling)
  Sender: FDA-Public Use
  Company Number: BR-BAYER-BR-2007-021079

PATIENT
  Age: 46 Year
  Sex: Female

DRUGS (5)
  1. BETASERON [Suspect]
     Indication: MULTIPLE SCLEROSIS
     Dosage: 8 MIU, EVERY 2D
     Route: 058
     Dates: start: 20020201
  2. FLUOXETINE HCL [Concomitant]
     Indication: DEPRESSION
     Route: 048
     Dates: start: 20060101
  3. BETASERON [Suspect]
     Dosage: BETAJECT
     Route: 058
     Dates: start: 20050101, end: 20100101
  4. PHENYTOIN [Concomitant]
     Route: 048
  5. PHENYTOIN [Concomitant]
     Indication: EPILEPSY
     Dosage: UNK, EVERY 12H
     Route: 048
     Dates: start: 20070101

REACTIONS (17)
  - EYE DISORDER [None]
  - DISORIENTATION [None]
  - UNEVALUABLE EVENT [None]
  - URINARY RETENTION [None]
  - BEDRIDDEN [None]
  - ASTHENIA [None]
  - COMA [None]
  - MOBILITY DECREASED [None]
  - GAIT DISTURBANCE [None]
  - MULTIPLE SCLEROSIS [None]
  - MEMORY IMPAIRMENT [None]
  - SYNCOPE [None]
  - MUSCULOSKELETAL STIFFNESS [None]
  - PRURITUS [None]
  - SENSATION OF HEAVINESS [None]
  - SOMNOLENCE [None]
  - BRUXISM [None]
